FAERS Safety Report 6783536-8 (Version None)
Quarter: 2010Q3

REPORT INFORMATION
  Report Type: 
  Country: None (occurrence: None)
  Receive Date: 20100618
  Receipt Date: 20100607
  Transmission Date: 20110219
  Serious: Yes (Hospitalization)
  Sender: FDA-Public Use
  Company Number: 013508

PATIENT
  Age: 64 Year
  Sex: Male
  Weight: 99.3 kg

DRUGS (17)
  1. ZAROXOLYN [Suspect]
     Dosage: (ORAL)
     Route: 048
     Dates: start: 20100304, end: 20100311
  2. CELECOXIB [Suspect]
     Indication: OSTEOARTHRITIS
     Dates: start: 20100304
  3. CELECOXIB [Suspect]
     Indication: RHEUMATOID ARTHRITIS
     Dates: start: 20100304
  4. CELECOXIB [Suspect]
     Indication: OSTEOARTHRITIS
     Dates: start: 20100428
  5. CELECOXIB [Suspect]
     Indication: RHEUMATOID ARTHRITIS
     Dates: start: 20100428
  6. LASIX [Suspect]
     Dosage: (ORAL)
     Route: 048
     Dates: start: 20030813, end: 20100311
  7. NEXIUM [Concomitant]
  8. RANITIDINE HYDROCHLORIDE [Concomitant]
  9. METOPROLOL [Concomitant]
  10. ACCUPRIL [Concomitant]
  11. TERAZOSIN HCL [Concomitant]
  12. METFORMIN HCL [Concomitant]
  13. NIACIN [Concomitant]
  14. K-DUR [Concomitant]
  15. NORVASC [Concomitant]
  16. IBUPROFEN [Suspect]
  17. NAPROXEN [Suspect]

REACTIONS (8)
  - ASTHENIA [None]
  - BLOOD CREATININE INCREASED [None]
  - BLOOD UREA INCREASED [None]
  - DEHYDRATION [None]
  - HYPOKALAEMIA [None]
  - NAUSEA [None]
  - VOMITING [None]
  - WEIGHT DECREASED [None]
